FAERS Safety Report 10873132 (Version 1)
Quarter: 2015Q1

REPORT INFORMATION
  Report Type: Spontaneous
  Country: US (occurrence: None)
  Receive Date: 20150223
  Receipt Date: 20150223
  Transmission Date: 20150721
  Serious: Yes (Hospitalization)
  Sender: FDA-Public Use
  Company Number: None

PATIENT
  Age: 61 Year
  Sex: Male
  Weight: 99.1 kg

DRUGS (2)
  1. GABAPENTIN. [Suspect]
     Active Substance: GABAPENTIN
     Indication: DRUG WITHDRAWAL SYNDROME
     Route: 048
     Dates: start: 20141015, end: 20141111
  2. PRAZOSIN [Suspect]
     Active Substance: PRAZOSIN
     Indication: POST-TRAUMATIC STRESS DISORDER
     Route: 048
     Dates: start: 20140911, end: 20141111

REACTIONS (7)
  - Dizziness [None]
  - Loss of consciousness [None]
  - Condition aggravated [None]
  - Hypotension [None]
  - Head injury [None]
  - Dizziness postural [None]
  - Vertigo [None]

NARRATIVE: CASE EVENT DATE: 20141111
